FAERS Safety Report 25745532 (Version 1)
Quarter: 2025Q3

REPORT INFORMATION
  Report Type: Report from Study
  Country: EU (occurrence: EU)
  Receive Date: 20250901
  Receipt Date: 20250901
  Transmission Date: 20251020
  Serious: Yes (Other)
  Sender: AUROBINDO
  Company Number: EU-TEVA-2019-IT-1129007

PATIENT
  Age: 78 Year
  Sex: Male

DRUGS (4)
  1. MYCOPHENOLIC ACID [Suspect]
     Active Substance: MYCOPHENOLIC ACID
     Indication: Serpiginous choroiditis
     Dosage: 2 GRAM, ONCE A DAY (2 GRAM DAILY;)
     Route: 062
  2. MYCOPHENOLIC ACID [Suspect]
     Active Substance: MYCOPHENOLIC ACID
     Indication: Immunosuppressant drug therapy
     Dosage: 2 GRAM, ONCE A DAY
     Route: 065
  3. PREDNISONE [Suspect]
     Active Substance: PREDNISONE
     Indication: Serpiginous choroiditis
     Dosage: 10 MILLIGRAM, ONCE A DAY
     Route: 062
  4. DEXAMETHASONE [Suspect]
     Active Substance: DEXAMETHASONE
     Indication: Serpiginous choroiditis
     Route: 065

REACTIONS (4)
  - Osteoporosis [Unknown]
  - Serpiginous choroiditis [Unknown]
  - Intraocular pressure increased [Recovered/Resolved]
  - Toxicity to various agents [Unknown]
